FAERS Safety Report 14457120 (Version 3)
Quarter: 2018Q2

REPORT INFORMATION
  Report Type: Other
  Country: CA (occurrence: CA)
  Receive Date: 20180130
  Receipt Date: 20180507
  Transmission Date: 20180711
  Serious: Yes (Life-Threatening, Other)
  Sender: FDA-Public Use
  Company Number: CA-APOTEX-2018AP005831

PATIENT
  Age: 8 Year
  Sex: Male

DRUGS (1)
  1. SALBUTAMOL [Suspect]
     Active Substance: ALBUTEROL
     Indication: ASTHMA
     Dosage: 100 ?G, UNK
     Route: 065

REACTIONS (4)
  - Product physical issue [Recovered/Resolved]
  - Device issue [Recovered/Resolved]
  - Asthma [Recovered/Resolved]
  - Wrong technique in product usage process [Recovered/Resolved]
